FAERS Safety Report 15612845 (Version 1)
Quarter: 2018Q4

REPORT INFORMATION
  Report Type: Spontaneous
  Country: US (occurrence: US)
  Receive Date: 20181113
  Receipt Date: 20181113
  Transmission Date: 20190205
  Serious: No
  Sender: FDA-Public Use
  Company Number: US-BRACCO-2018US02584

PATIENT

DRUGS (1)
  1. LUMASON [Suspect]
     Active Substance: SULFUR HEXAFLUORIDE
     Indication: ULTRASOUND LIVER
     Dosage: UNK, SINGLE
     Route: 042
     Dates: start: 201804, end: 201804

REACTIONS (1)
  - Drug effect prolonged [Recovered/Resolved]

NARRATIVE: CASE EVENT DATE: 201804
